FAERS Safety Report 6847243-5 (Version None)
Quarter: 2010Q2

REPORT INFORMATION
  Report Type: 
  Country: None (occurrence: None)
  Receive Date: 20100629
  Receipt Date: 20100503
  Transmission Date: 20101027
  Serious: No
  Sender: FDA-Public Use
  Company Number: US-WYE-H15093410

PATIENT
  Age: 25 Year
  Sex: Female
  Weight: 72.64 kg

DRUGS (3)
  1. PRISTIQ [Suspect]
     Indication: MENSTRUAL DISORDER
     Dosage: 50 MG 1X PER 1 DAY, ORAL : 50 MG 1X PER 3 DAY, ORAL : ^TAPERING DOWN^, ORAL
     Route: 048
     Dates: start: 20100105, end: 20100414
  2. PRISTIQ [Suspect]
     Indication: MENSTRUAL DISORDER
     Dosage: 50 MG 1X PER 1 DAY, ORAL : 50 MG 1X PER 3 DAY, ORAL : ^TAPERING DOWN^, ORAL
     Route: 048
     Dates: start: 20100415, end: 20100429
  3. PRISTIQ [Suspect]
     Indication: MENSTRUAL DISORDER
     Dosage: 50 MG 1X PER 1 DAY, ORAL : 50 MG 1X PER 3 DAY, ORAL : ^TAPERING DOWN^, ORAL
     Route: 048
     Dates: start: 20100430

REACTIONS (2)
  - DIZZINESS [None]
  - DRUG WITHDRAWAL SYNDROME [None]
